FAERS Safety Report 6866554-0 (Version None)
Quarter: 2010Q3

REPORT INFORMATION
  Report Type: 
  Country: None (occurrence: None)
  Receive Date: 20100722
  Receipt Date: 20100708
  Transmission Date: 20110219
  Serious: Yes (Other)
  Sender: FDA-Public Use
  Company Number: PHHY2010US43510

PATIENT
  Sex: Male
  Weight: 86.2 kg

DRUGS (5)
  1. ZOMETA [Suspect]
     Indication: PROSTATE CANCER
     Dosage: 4 MG, UNK
     Route: 042
     Dates: start: 20100617
  2. BICALUTAMIDE [Concomitant]
  3. DOXAZOSIN [Concomitant]
  4. SIMVASTATIN [Concomitant]
  5. AVODART [Concomitant]

REACTIONS (4)
  - EPISTAXIS [None]
  - ERYTHEMA [None]
  - HAEMOPTYSIS [None]
  - INCREASED UPPER AIRWAY SECRETION [None]
